FAERS Safety Report 5312018-5 (Version None)
Quarter: 2007Q2

REPORT INFORMATION
  Report Type: 
  Country: None (occurrence: None)
  Receive Date: 20070430
  Receipt Date: 20060606
  Transmission Date: 20071010
  Serious: No
  Sender: FDA-Public Use
  Company Number: 2006UW11632

PATIENT
  Age: 58 Year
  Sex: Female
  Weight: 81.6 kg

DRUGS (3)
  1. NEXIUM [Suspect]
     Indication: GASTRITIS
     Route: 048
  2. ASPIRIN [Concomitant]
  3. PRAVACHOL [Concomitant]

REACTIONS (3)
  - APHONIA [None]
  - NAUSEA [None]
  - SINUSITIS [None]
